FAERS Safety Report 5651154-0 (Version None)
Quarter: 2008Q1

REPORT INFORMATION
  Report Type: 
  Country: None (occurrence: None)
  Receive Date: 20080305
  Receipt Date: 20080227
  Transmission Date: 20080703
  Serious: Yes (Other)
  Sender: FDA-Public Use
  Company Number: JP-MERCK-0802USA04808

PATIENT
  Age: 49 Year
  Sex: Male

DRUGS (4)
  1. PEPCID RPD [Suspect]
     Indication: ABDOMINAL PAIN UPPER
     Route: 048
     Dates: start: 20070220, end: 20070221
  2. FLOMOX [Concomitant]
     Indication: BRONCHITIS
     Route: 065
     Dates: start: 20070220, end: 20070221
  3. PL-GRANULES [Concomitant]
     Indication: NASOPHARYNGITIS
     Route: 065
     Dates: start: 20070220, end: 20070221
  4. DASEN [Concomitant]
     Indication: BRONCHITIS
     Route: 065
     Dates: start: 20070220, end: 20070221

REACTIONS (1)
  - DRUG ERUPTION [None]
